FAERS Safety Report 6199128-8 (Version None)
Quarter: 2009Q2

REPORT INFORMATION
  Report Type: 
  Country: None (occurrence: None)
  Receive Date: 20090522
  Receipt Date: 20090512
  Transmission Date: 20091009
  Serious: Yes (Other)
  Sender: FDA-Public Use
  Company Number: CA-ROCHE-622913

PATIENT
  Sex: Male

DRUGS (1)
  1. XELODA [Suspect]
     Indication: COLORECTAL CANCER
     Dosage: STOP DATE: 2009; DOSE GIVE EVERY 14 DAYS FOLLOWED BY 7 DAY REST PERIOD.
     Route: 048
     Dates: end: 20090401

REACTIONS (1)
  - EAR NEOPLASM [None]
